FAERS Safety Report 25955930 (Version 2)
Quarter: 2025Q4

REPORT INFORMATION
  Report Type: Spontaneous
  Country: EU (occurrence: EU)
  Receive Date: 20251024
  Receipt Date: 20251031
  Transmission Date: 20260117
  Serious: Yes (Other)
  Sender: EMD SERONO INC
  Company Number: EU-Merck Healthcare KGaA-2025052783

PATIENT
  Age: 63 Year
  Sex: Male

DRUGS (4)
  1. MAVENCLAD [Suspect]
     Active Substance: CLADRIBINE
     Indication: Multiple sclerosis
     Dosage: YEAR 1 WEEK 1  THERAPY: TWO TABLETS ON DAY 1 TO 4, 1 ON DAY 5
     Dates: start: 202401
  2. MAVENCLAD [Suspect]
     Active Substance: CLADRIBINE
     Dosage: YEAR 1 WEEK 5 THERAPY: 2 TABLETS ON DAY 1 TO 3 AND 1 TABLET ON DAY 4 AND 5
  3. MAVENCLAD [Suspect]
     Active Substance: CLADRIBINE
     Dosage: YEAR 2 WEEK 1 THERAPY: 2 TABLETS ON DAY 1 TO 4, 1 TABLET DAY 5
     Dates: start: 202501
  4. MAVENCLAD [Suspect]
     Active Substance: CLADRIBINE
     Dosage: YEAR TWO WEEK FIVE THERAPY: 2 TABLETS ON DAY 1 TO 3, 1 TABLET ON DAY 4 TO 5
     Dates: start: 202502

REACTIONS (1)
  - Prostate cancer [Unknown]

NARRATIVE: CASE EVENT DATE: 20250501
